FAERS Safety Report 5521473-7 (Version None)
Quarter: 2007Q4

REPORT INFORMATION
  Report Type: 
  Country: None (occurrence: None)
  Receive Date: 20071119
  Receipt Date: 20071107
  Transmission Date: 20080405
  Serious: Yes (Hospitalization, Other)
  Sender: FDA-Public Use
  Company Number: US-PFIZER INC-2007094220

PATIENT
  Sex: Male

DRUGS (6)
  1. ZYVOX [Suspect]
     Indication: OSTEOMYELITIS
     Route: 048
  2. ALL OTHER THERAPEUTIC PRODUCTS [Concomitant]
     Indication: HYPERTENSION
     Route: 048
  3. NAPROXEN [Concomitant]
     Indication: ARTHRITIS
     Route: 048
  4. METFORMIN HYDROCHLORIDE [Concomitant]
     Indication: DIABETES MELLITUS
     Route: 048
  5. LISINOPRIL [Concomitant]
     Indication: HYPERTENSION
     Route: 048
  6. NEURONTIN [Concomitant]
     Indication: NEUROPATHY
     Route: 048

REACTIONS (6)
  - BLOOD CREATININE INCREASED [None]
  - BLOOD POTASSIUM INCREASED [None]
  - BLOOD UREA INCREASED [None]
  - CELLULITIS [None]
  - OEDEMA PERIPHERAL [None]
  - RENAL FAILURE [None]
